FAERS Safety Report 5946853-7 (Version None)
Quarter: 2008Q4

REPORT INFORMATION
  Report Type: 
  Country: None (occurrence: None)
  Receive Date: 20081021
  Receipt Date: 20071126
  Transmission Date: 20090506
  Serious: Yes (Other)
  Sender: FDA-Public Use
  Company Number: US-WYE-H01406707

PATIENT
  Age: 64 Year
  Sex: Female
  Weight: 104.42 kg

DRUGS (3)
  1. PREMARIN [Suspect]
     Indication: HORMONE THERAPY
     Dosage: 1 TABLET 1X PER 1 DAY, ORAL
     Route: 048
     Dates: start: 19750101, end: 20010101
  2. PLAQENIL (HYDROXYCHLOROQUINE PHOSPHATE) [Concomitant]
  3. AVAPRO [Concomitant]

REACTIONS (1)
  - BREAST CANCER [None]
